FAERS Safety Report 10050446 (Version 4)
Quarter: 2014Q2

REPORT INFORMATION
  Report Type: Report from Study
  Country: US (occurrence: US)
  Receive Date: 20140401
  Receipt Date: 20140416
  Transmission Date: 20141212
  Serious: Yes (Death, Hospitalization, Other)
  Sender: FDA-Public Use
  Company Number: US-ACTELION-A-US2014-94809

PATIENT
  Age: 84 Year
  Sex: Male

DRUGS (3)
  1. TRACLEER [Suspect]
     Indication: PULMONARY ARTERIAL HYPERTENSION
     Dosage: UNK UNK, QD
     Route: 048
     Dates: end: 20140205
  2. VENTAVIS [Suspect]
     Indication: PULMONARY ARTERIAL HYPERTENSION
     Dosage: UNK
     Route: 055
     Dates: end: 20140224
  3. OPSUMIT [Suspect]
     Indication: PULMONARY ARTERIAL HYPERTENSION
     Dosage: 10 MG, QD
     Route: 048
     Dates: end: 20140224

REACTIONS (6)
  - Cardiac failure [Fatal]
  - Disease progression [Fatal]
  - Chronic obstructive pulmonary disease [Not Recovered/Not Resolved]
  - Cor pulmonale [Not Recovered/Not Resolved]
  - Chronic respiratory failure [Not Recovered/Not Resolved]
  - Liver disorder [Unknown]
